FAERS Safety Report 5798293-1 (Version None)
Quarter: 2008Q3

REPORT INFORMATION
  Report Type: 
  Country: None (occurrence: None)
  Receive Date: 20080702
  Receipt Date: 20080624
  Transmission Date: 20090109
  Serious: Yes (Other)
  Sender: FDA-Public Use
  Company Number: US-JNJFOC-20080606298

PATIENT
  Age: 59 Year
  Sex: Female
  Weight: 71.67 kg

DRUGS (6)
  1. TOPAMAX [Suspect]
     Dosage: TAKEN AT NIGHT
     Route: 048
  2. TOPAMAX [Suspect]
     Indication: MIGRAINE PROPHYLAXIS
     Route: 048
  3. ZOCOR [Concomitant]
     Indication: BLOOD CHOLESTEROL INCREASED
     Route: 048
  4. SYNTHROID [Concomitant]
     Indication: HYPOTHYROIDISM
     Route: 048
  5. SINGULAIR [Concomitant]
     Indication: MULTIPLE ALLERGIES
     Route: 048
  6. CHLORPROMAZINE [Concomitant]
     Indication: HICCUPS
     Route: 048

REACTIONS (14)
  - APHASIA [None]
  - ASTHENOPIA [None]
  - DISTURBANCE IN ATTENTION [None]
  - DIZZINESS [None]
  - DRY EYE [None]
  - EYE PAIN [None]
  - FACIAL PALSY [None]
  - HEADACHE [None]
  - HICCUPS [None]
  - MEMORY IMPAIRMENT [None]
  - PAIN [None]
  - SENSORY DISTURBANCE [None]
  - VISION BLURRED [None]
  - VISUAL IMPAIRMENT [None]
